FAERS Safety Report 9821653 (Version 1)
Quarter: 2014Q1

REPORT INFORMATION
  Report Type: Spontaneous
  Country: US (occurrence: US)
  Receive Date: 20140116
  Receipt Date: 20140116
  Transmission Date: 20141002
  Serious: No
  Sender: FDA-Public Use
  Company Number: US-PFIZER INC-2014013941

PATIENT
  Age: 56 Year
  Sex: Male
  Weight: 162 kg

DRUGS (1)
  1. LYRICA [Suspect]
     Indication: NEUROPATHY PERIPHERAL
     Dosage: 50 MG, DAILY
     Dates: start: 201208

REACTIONS (3)
  - Burning sensation [Recovering/Resolving]
  - Pain in extremity [Recovering/Resolving]
  - Skin lesion [Unknown]
